FAERS Safety Report 9859876 (Version 1)
Quarter: 2014Q1

REPORT INFORMATION
  Report Type: Spontaneous
  Country: US (occurrence: US)
  Receive Date: 20140131
  Receipt Date: 20140131
  Transmission Date: 20141002
  Serious: No
  Sender: FDA-Public Use
  Company Number: US-HALOZYME THERAPEUTICS, INC.-2013-US-HYL-00343

PATIENT
  Sex: 0

DRUGS (1)
  1. HYLENEX RECOMBINANT [Suspect]
     Indication: ADJUVANT THERAPY
     Dosage: 1 ML, SINGLE
     Route: 058
     Dates: start: 201208, end: 201208

REACTIONS (1)
  - Drug ineffective [Recovered/Resolved]
